FAERS Safety Report 6134862-7 (Version None)
Quarter: 2009Q1

REPORT INFORMATION
  Report Type: 
  Country: None (occurrence: None)
  Receive Date: 20090327
  Receipt Date: 20090316
  Transmission Date: 20090719
  Serious: Yes (Other)
  Sender: FDA-Public Use
  Company Number: TW-PFIZER INC-2009187548

PATIENT

DRUGS (2)
  1. XANAX [Suspect]
     Indication: ANXIETY
     Dosage: FREQUENCY: EVERYDAY;
     Route: 048
  2. XANAX [Suspect]
     Indication: DEPRESSION

REACTIONS (2)
  - OVERDOSE [None]
  - SUICIDE ATTEMPT [None]
